FAERS Safety Report 25839960 (Version 1)
Quarter: 2025Q3

REPORT INFORMATION
  Report Type: Spontaneous
  Country: EU (occurrence: EU)
  Receive Date: 20250924
  Receipt Date: 20250924
  Transmission Date: 20251021
  Serious: Yes (Death, Other)
  Sender: MUNDIPHARMA EDO
  Company Number: EU-NAPPMUNDI-GBR-2025-0129026

PATIENT
  Age: 70 Year
  Sex: Male

DRUGS (1)
  1. REZAFUNGIN ACETATE [Suspect]
     Active Substance: REZAFUNGIN ACETATE
     Indication: Systemic candida
     Route: 065

REACTIONS (3)
  - Cardiogenic shock [Fatal]
  - Acute myocardial infarction [Fatal]
  - Disease progression [Not Recovered/Not Resolved]
